FAERS Safety Report 4921263-X (Version None)
Quarter: 2006Q1

REPORT INFORMATION
  Report Type: 
  Country: None (occurrence: None)
  Receive Date: 20060224
  Receipt Date: 20060214
  Transmission Date: 20060701
  Serious: Yes (Hospitalization)
  Sender: FDA-Public Use
  Company Number: US-KINGPHARMUSA00001-K200600211

PATIENT
  Age: 81 Year
  Sex: Male

DRUGS (14)
  1. ALTACE [Suspect]
     Dosage: UNK, QD
     Route: 048
     Dates: start: 20051110, end: 20051226
  2. HEXAQUINE [Suspect]
     Route: 048
     Dates: start: 20050916, end: 20051229
  3. NEURONTIN [Concomitant]
  4. LEXOMIL [Concomitant]
  5. AERIUS [Concomitant]
  6. MAG 2 [Concomitant]
  7. PREVISCAN [Concomitant]
  8. TARDYFERON    /GFR/ [Concomitant]
  9. CARDENSIEL [Concomitant]
  10. COVERSYL  /BEL/ [Concomitant]
  11. BUMETANIDE [Concomitant]
  12. ELISOR [Concomitant]
  13. NEORECORMON ^BOEHRINGER MANNHEIM^ [Concomitant]
     Dosage: UNK, BIW
     Route: 058
  14. DELURSAN [Concomitant]

REACTIONS (9)
  - ANAEMIA [None]
  - ASCITES [None]
  - CHOLESTASIS [None]
  - ECZEMA [None]
  - EOSINOPHILIA [None]
  - LYMPHADENOPATHY [None]
  - PRURITUS [None]
  - RASH MACULO-PAPULAR [None]
  - THROMBOCYTOPENIA [None]
